FAERS Safety Report 17513802 (Version 2)
Quarter: 2020Q3

REPORT INFORMATION
  Report Type: Report from Study
  Country: US (occurrence: US)
  Receive Date: 20200306
  Receipt Date: 20200716
  Transmission Date: 20201102
  Serious: No
  Sender: FDA-Public Use
  Company Number: GXBR2014US002537

PATIENT
  Sex: Male

DRUGS (8)
  1. RHINOCORT [Concomitant]
     Active Substance: BUDESONIDE
     Indication: ASTHMA
     Dosage: UNK
     Route: 055
  2. SOMATROPIN (RHGH) LYOPHILIZED POWDER [Suspect]
     Active Substance: SOMATROPIN
     Indication: GROWTH HORMONE DEFICIENCY
     Dosage: 0.056 MG/KG DECREASED TO 0.042 MG/KG, QD
     Route: 058
     Dates: start: 20120413
  3. QVAR [Concomitant]
     Active Substance: BECLOMETHASONE DIPROPIONATE
     Indication: ASTHMA
     Dosage: UNK
     Route: 055
     Dates: start: 201006
  4. ALBUTEROL. [Concomitant]
     Active Substance: ALBUTEROL
     Indication: ASTHMA
     Dosage: UNK
     Route: 055
  5. ZYRTEC [Concomitant]
     Active Substance: CETIRIZINE HYDROCHLORIDE
     Indication: HYPERSENSITIVITY
     Dosage: UNK
     Route: 048
  6. VITAMIN D [Concomitant]
     Active Substance: VITAMIN D NOS
     Indication: VITAMIN D DEFICIENCY
     Dosage: UNK
     Route: 048
     Dates: start: 20121109
  7. ARIMIDEX [Concomitant]
     Active Substance: ANASTROZOLE
     Indication: PROPHYLAXIS
     Dosage: UNK
     Route: 048
     Dates: start: 201205
  8. PATADAY [Concomitant]
     Active Substance: OLOPATADINE HYDROCHLORIDE
     Indication: HYPERSENSITIVITY
     Dosage: UNK
     Route: 047

REACTIONS (4)
  - Injury [Recovered/Resolved]
  - Pharyngitis streptococcal [Recovered/Resolved]
  - Hyporeflexia [Recovered/Resolved]
  - Joint dislocation [Recovered/Resolved]

NARRATIVE: CASE EVENT DATE: 20120706
